FAERS Safety Report 5546118-1 (Version None)
Quarter: 2007Q4

REPORT INFORMATION
  Report Type: 
  Country: None (occurrence: None)
  Receive Date: 20071211
  Receipt Date: 20071101
  Transmission Date: 20080405
  Serious: No
  Sender: FDA-Public Use
  Company Number: US-BRISTOL-MYERS SQUIBB COMPANY-13966569

PATIENT
  Age: 64 Year
  Sex: Male
  Weight: 68 kg

DRUGS (3)
  1. EMSAM [Suspect]
     Route: 062
     Dates: start: 20071029
  2. RITALIN [Concomitant]
  3. VICODIN [Concomitant]

REACTIONS (1)
  - ANXIETY [None]
